FAERS Safety Report 12632691 (Version 2)
Quarter: 2016Q3

REPORT INFORMATION
  Report Type: Spontaneous
  Country: US (occurrence: US)
  Receive Date: 20160808
  Receipt Date: 20160808
  Transmission Date: 20161109
  Serious: No
  Sender: FDA-Public Use
  Company Number: US-BEH-2015056521

PATIENT
  Age: 80 Year
  Sex: Male
  Weight: 84 kg

DRUGS (35)
  1. HIZENTRA [Suspect]
     Active Substance: HUMAN IMMUNOGLOBULIN G
     Route: 058
  2. CIPRO [Concomitant]
     Active Substance: CIPROFLOXACIN HYDROCHLORIDE
  3. POTASSIUM CL [Concomitant]
     Active Substance: POTASSIUM CHLORIDE
  4. ZANTAC [Concomitant]
     Active Substance: RANITIDINE HYDROCHLORIDE
  5. MULTIVITAMINS WITH MINERALS [Concomitant]
     Active Substance: MINERALS\VITAMINS
  6. CRESTOR [Concomitant]
     Active Substance: ROSUVASTATIN CALCIUM
  7. DOMPERIDONE BP [Concomitant]
  8. HIZENTRA [Suspect]
     Active Substance: HUMAN IMMUNOGLOBULIN G
     Route: 058
  9. DIPHENHYDRAMINE. [Concomitant]
     Active Substance: DIPHENHYDRAMINE
  10. ISOSORBIDE MN [Concomitant]
     Active Substance: ISOSORBIDE MONONITRATE
  11. ALBUTEROL SULF HFA [Concomitant]
  12. THERATEARS [Concomitant]
     Active Substance: CARBOXYMETHYLCELLULOSE SODIUM
  13. PREDNISONE. [Concomitant]
     Active Substance: PREDNISONE
  14. LIDOCAINE/PRILOCAINE [Concomitant]
     Active Substance: LIDOCAINE\PRILOCAINE
  15. L-M-X [Concomitant]
  16. OXYCODONE [Concomitant]
     Active Substance: OXYCODONE
  17. RESTASIS [Concomitant]
     Active Substance: CYCLOSPORINE
  18. MIRALAX [Concomitant]
     Active Substance: POLYETHYLENE GLYCOL 3350
  19. QVAR [Concomitant]
     Active Substance: BECLOMETHASONE DIPROPIONATE
  20. HIZENTRA [Suspect]
     Active Substance: HUMAN IMMUNOGLOBULIN G
     Indication: IMMUNODEFICIENCY COMMON VARIABLE
     Route: 058
  21. HIZENTRA [Suspect]
     Active Substance: HUMAN IMMUNOGLOBULIN G
     Route: 058
  22. DELSYM [Concomitant]
     Active Substance: DEXTROMETHORPHAN
  23. DIGOX [Concomitant]
     Active Substance: DIGOXIN
  24. LYRICA [Concomitant]
     Active Substance: PREGABALIN
  25. DEXAMETHASONE. [Concomitant]
     Active Substance: DEXAMETHASONE
  26. OXYGEN. [Concomitant]
     Active Substance: OXYGEN
  27. LASIX [Concomitant]
     Active Substance: FUROSEMIDE
  28. MENTAX [Concomitant]
     Active Substance: BUTENAFINE HYDROCHLORIDE
  29. SPIRIVA [Concomitant]
     Active Substance: TIOTROPIUM BROMIDE MONOHYDRATE
  30. DOXYCYCLINE. [Concomitant]
     Active Substance: DOXYCYCLINE
  31. WARFARIN [Concomitant]
     Active Substance: WARFARIN
  32. VIGAMOX [Concomitant]
     Active Substance: MOXIFLOXACIN HYDROCHLORIDE
  33. EPIPEN [Concomitant]
     Active Substance: EPINEPHRINE
  34. DITROPAN XL [Concomitant]
     Active Substance: OXYBUTYNIN CHLORIDE
  35. MUCINEX [Concomitant]
     Active Substance: GUAIFENESIN

REACTIONS (1)
  - Urinary tract infection [Unknown]

NARRATIVE: CASE EVENT DATE: 201511
